FAERS Safety Report 24830023 (Version 1)
Quarter: 2025Q1

REPORT INFORMATION
  Report Type: Spontaneous
  Country: US (occurrence: None)
  Receive Date: 20250109
  Receipt Date: 20250109
  Transmission Date: 20250409
  Serious: Yes (Hospitalization)
  Sender: FDA-CTU
  Company Number: None

PATIENT
  Age: 71 Year
  Sex: Male

DRUGS (4)
  1. MYCOPHENOLIC ACID [Suspect]
     Active Substance: MYCOPHENOLIC ACID
     Dosage: FREQUENCY : TWICE A DAY;?
     Route: 048
  2. NEORAL [Concomitant]
     Active Substance: CYCLOSPORINE
  3. NEORAL [Concomitant]
     Active Substance: CYCLOSPORINE
  4. DOVATO [Concomitant]

REACTIONS (4)
  - Lower gastrointestinal haemorrhage [None]
  - Haematoma [None]
  - Gastrointestinal mucosal disorder [None]
  - Therapy change [None]

NARRATIVE: CASE EVENT DATE: 20241229
